FAERS Safety Report 9469622 (Version 2)
Quarter: 2013Q3

REPORT INFORMATION
  Report Type: Spontaneous
  Country: DE (occurrence: DE)
  Receive Date: 20130822
  Receipt Date: 20130829
  Transmission Date: 20140515
  Serious: Yes (Other)
  Sender: FDA-Public Use
  Company Number: DE-RANBAXY-2013RR-72160

PATIENT
  Age: 32 Year
  Sex: Female
  Weight: 69 kg

DRUGS (4)
  1. LORATADINE [Suspect]
     Indication: URTICARIA
     Dosage: 10 MG, QD, DURING GESTATIONAL WEEK 10-15
     Route: 048
  2. TELFAST 180 [Concomitant]
     Indication: URTICARIA
     Dosage: 180 MG, QD, DURING GESTATIONAL WEEK 0-6
     Route: 048
  3. FOLSAURE [Concomitant]
     Indication: PROPHYLAXIS OF NEURAL TUBE DEFECT
     Dosage: 400 ?G, QD, DURING GESTATIONAL WEEK 10-15
     Route: 048
  4. ALLERGOSPASMIN [Concomitant]
     Indication: ASTHMA
     Dosage: DURING GESTATIONAL WEEK 10-15
     Route: 055

REACTIONS (1)
  - Abortion spontaneous [Recovered/Resolved]
